FAERS Safety Report 25837614 (Version 1)
Quarter: 2025Q3

REPORT INFORMATION
  Report Type: Report from Study
  Country: US (occurrence: US)
  Receive Date: 20250923
  Receipt Date: 20250923
  Transmission Date: 20251021
  Serious: Yes (Other)
  Sender: MALLINCKRODT
  Company Number: US-MALLINCKRODT-MNK202505680

PATIENT
  Sex: Female

DRUGS (2)
  1. CORTICOTROPIN [Suspect]
     Active Substance: CORTICOTROPIN
     Indication: Neurotrophic keratopathy
     Dates: start: 20241106
  2. CORTICOTROPIN [Suspect]
     Active Substance: CORTICOTROPIN
     Indication: Keratitis interstitial

REACTIONS (9)
  - Blindness [Unknown]
  - Eye luxation [Unknown]
  - Rib fracture [Unknown]
  - Fall [Unknown]
  - Lacrimation increased [Unknown]
  - Eye pain [Unknown]
  - Depression [Unknown]
  - Stress [Unknown]
  - Vomiting [Unknown]
